FAERS Safety Report 8874233 (Version 1)
Quarter: 2012Q4

REPORT INFORMATION
  Report Type: 
  Country: US (occurrence: US)
  Receive Date: 20121030
  Receipt Date: 20121030
  Transmission Date: 20130627
  Serious: Yes (Other)
  Sender: FDA-Public Use
  Company Number: US-ELI_LILLY_AND_COMPANY-US201210005608

PATIENT
  Sex: Male

DRUGS (3)
  1. BYDUREON [Suspect]
     Dosage: 2 mg, weekly (1/W)
     Route: 058
     Dates: start: 20120927
  2. BYETTA [Suspect]
     Dosage: UNK, unknown
     Route: 058
  3. LIPITOR [Concomitant]
     Dosage: UNK
     Route: 048

REACTIONS (4)
  - Face oedema [Recovering/Resolving]
  - Arthralgia [Recovering/Resolving]
  - Injection site urticaria [Recovering/Resolving]
  - Urticaria [Recovering/Resolving]
